FAERS Safety Report 9521262 (Version 1)
Quarter: 2013Q3

REPORT INFORMATION
  Report Type: Spontaneous
  Country: US (occurrence: None)
  Receive Date: 20130911
  Receipt Date: 20130911
  Transmission Date: 20140515
  Serious: Yes (Other)
  Sender: FDA-Public Use
  Company Number: 001593556A

PATIENT
  Age: 51 Year
  Sex: Female

DRUGS (4)
  1. MEANINGFUL BEAUTY ANTIOXIDANT DAY CREME WITH SPF 20 [Suspect]
     Dosage: TWICE A DAY DERMAL
     Dates: start: 20130725, end: 20130728
  2. SKIN BRIGHTENING DECOLLETE AND NECK TREATMENT SPF 15 [Suspect]
     Dosage: TWICE A DAY DERMAL
  3. HYDROCHLOROTHIAZIDE [Concomitant]
  4. LISINOPRIL [Concomitant]

REACTIONS (6)
  - Erythema [None]
  - Rash macular [None]
  - Pruritus [None]
  - Urticaria [None]
  - Throat irritation [None]
  - Pharyngeal erythema [None]
